FAERS Safety Report 6616155-4 (Version None)
Quarter: 2010Q1

REPORT INFORMATION
  Report Type: 
  Country: None (occurrence: None)
  Receive Date: 20100305
  Receipt Date: 20100226
  Transmission Date: 20100710
  Serious: Yes (Hospitalization, Other)
  Sender: FDA-Public Use
  Company Number: CA-PFIZER INC-2008096071

PATIENT
  Age: 69 Year
  Sex: Female
  Weight: 173.5 kg

DRUGS (16)
  1. IBUPROFEN [Suspect]
     Indication: ARTHRITIS
     Dosage: UNK
     Route: 048
     Dates: start: 20081106, end: 20081109
  2. NAPROXEN [Interacting]
     Indication: ARTHRITIS
     Dosage: UNK
     Route: 048
     Dates: start: 20081106, end: 20081109
  3. BLINDED *NO SUBJECT DRUG [Interacting]
     Indication: ARTHRITIS
     Dosage: UNK
     Route: 048
     Dates: start: 20081106, end: 20081109
  4. BLINDED *PLACEBO [Interacting]
     Indication: ARTHRITIS
     Dosage: UNK
     Route: 048
     Dates: start: 20081106, end: 20081109
  5. BLINDED CELECOXIB [Interacting]
     Indication: ARTHRITIS
     Dosage: UNK
     Route: 048
     Dates: start: 20081106, end: 20081109
  6. IBUPROFEN [Interacting]
     Dosage: UNK
     Route: 048
     Dates: start: 20081106, end: 20081109
  7. NAPROXEN [Interacting]
     Dosage: UNK
     Route: 048
     Dates: start: 20081106, end: 20081109
  8. CORTISONE [Interacting]
     Dosage: UNK
     Route: 014
     Dates: start: 20081108, end: 20081108
  9. NEXIUM [Concomitant]
     Dosage: UNK
     Dates: start: 20081106
  10. ASAPHEN [Concomitant]
     Dosage: UNK
     Dates: start: 20040817
  11. DETROL LA [Concomitant]
     Dosage: UNK
     Dates: start: 20080515
  12. TYLENOL-500 [Concomitant]
     Dosage: UNK
     Dates: start: 20080102
  13. CARBOCAL D 400 [Concomitant]
     Dosage: UNK
     Dates: start: 20010921
  14. SENOKOT [Concomitant]
     Dosage: UNK
     Dates: start: 20070130
  15. SUMATRIPTAN SUCCINATE [Concomitant]
     Dosage: UNK
     Dates: start: 20030327
  16. NITROGLYCERIN [Concomitant]
     Dosage: UNK
     Dates: start: 20040101

REACTIONS (8)
  - COLITIS ISCHAEMIC [None]
  - DIARRHOEA [None]
  - DRUG INTERACTION [None]
  - ESCHERICHIA INFECTION [None]
  - HAEMOGLOBIN DECREASED [None]
  - LARGE INTESTINAL HAEMORRHAGE [None]
  - RECTAL HAEMORRHAGE [None]
  - RED BLOOD CELL COUNT DECREASED [None]
